FAERS Safety Report 7126413-5 (Version None)
Quarter: 2010Q4

REPORT INFORMATION
  Report Type: 
  Country: None (occurrence: None)
  Receive Date: 20101129
  Receipt Date: 20101118
  Transmission Date: 20110411
  Serious: Yes (Congenital Anomaly, Other)
  Sender: FDA-Public Use
  Company Number: GB-JNJFOC-20100901341

PATIENT
  Sex: Male
  Weight: 2.8 kg

DRUGS (21)
  1. NORETHISTERONE [Suspect]
     Indication: DRUG EXPOSURE DURING PREGNANCY
     Route: 064
  2. MICONAZOLE [Suspect]
     Route: 064
  3. MICONAZOLE [Suspect]
     Indication: DRUG EXPOSURE DURING PREGNANCY
     Route: 064
  4. ARIPIPRAZOLE [Suspect]
     Indication: DRUG EXPOSURE DURING PREGNANCY
     Route: 064
  5. DIHYDROCODEINE [Suspect]
     Indication: DRUG EXPOSURE DURING PREGNANCY
     Route: 064
  6. LAMICTAL [Suspect]
     Indication: DRUG EXPOSURE DURING PREGNANCY
     Route: 064
  7. LANSOPRAZOLE [Suspect]
     Indication: DRUG EXPOSURE DURING PREGNANCY
     Route: 064
  8. PROPRANOLOL HYDROCHLORIDE [Suspect]
     Indication: DRUG EXPOSURE DURING PREGNANCY
     Route: 064
  9. SERTRALINE [Suspect]
     Indication: DRUG EXPOSURE DURING PREGNANCY
     Route: 064
  10. AMOXICILLIN [Concomitant]
     Indication: ILL-DEFINED DISORDER
     Route: 065
  11. BETAMETHASONE [Concomitant]
     Indication: ILL-DEFINED DISORDER
     Route: 065
  12. CHLORAMPHENICOL [Concomitant]
     Indication: ILL-DEFINED DISORDER
     Route: 065
  13. CLOBAZAM [Concomitant]
     Indication: ILL-DEFINED DISORDER
     Route: 065
  14. AMPICILLIN SODIUM/SULBACTAM SODIUM [Concomitant]
     Indication: ILL-DEFINED DISORDER
     Route: 065
  15. DICLOFENAC SODIUM [Concomitant]
     Indication: ILL-DEFINED DISORDER
     Route: 065
  16. FOLIC ACID [Concomitant]
     Indication: ILL-DEFINED DISORDER
     Route: 065
  17. LACTULOSE [Concomitant]
     Indication: ILL-DEFINED DISORDER
     Route: 065
  18. LIDOCAINE [Concomitant]
     Indication: ILL-DEFINED DISORDER
     Route: 065
  19. TPN [Concomitant]
     Indication: ILL-DEFINED DISORDER
     Route: 065
  20. OMEPRAZOLE [Concomitant]
     Indication: ILL-DEFINED DISORDER
     Route: 065
  21. PROCHLORPERAZINE [Concomitant]
     Indication: ILL-DEFINED DISORDER
     Route: 065

REACTIONS (4)
  - ATRIAL SEPTAL DEFECT [None]
  - DRUG EXPOSURE DURING PREGNANCY [None]
  - PREMATURE BABY [None]
  - VENTRICULAR SEPTAL DEFECT [None]
